FAERS Safety Report 5721203-X (Version None)
Quarter: 2008Q2

REPORT INFORMATION
  Report Type: 
  Country: None (occurrence: None)
  Receive Date: 20080429
  Receipt Date: 20080424
  Transmission Date: 20081010
  Serious: Yes (Hospitalization)
  Sender: FDA-Public Use
  Company Number: US-AVENTIS-200812719GDDC

PATIENT
  Age: 65 Year
  Sex: Male
  Weight: 78.4 kg

DRUGS (14)
  1. TAXOTERE [Suspect]
     Indication: PROSTATE CANCER
     Route: 042
     Dates: start: 20080311, end: 20080311
  2. PREDNISONE [Suspect]
     Indication: PROSTATE CANCER
     Route: 048
     Dates: start: 20080311
  3. PREDNISONE [Suspect]
     Route: 048
  4. ZOLADEX [Concomitant]
     Dosage: DOSE: 10.8 MG SC IMPLANT EVERY 12 WEEKS
     Route: 058
  5. ALBUTEROL SULFATE AND IPRATROPIUM BROMIDE [Concomitant]
     Dosage: DOSE: ALBUTEROL 103/ IPRATROPIUM 18 MCG (2 PUFFS)
     Route: 055
  6. ASPIRIN [Concomitant]
     Route: 048
  7. FORMOTEROL FUMARATE [Concomitant]
     Route: 055
  8. MOMETASONE FUROATE [Concomitant]
     Route: 055
  9. METOPROLOL TARTRATE [Concomitant]
     Route: 048
  10. CALCIUM WITH VITAMIN D             /01233101/ [Concomitant]
     Dosage: DOSE: CALCIUM 500 MG/ VITAMIN D 200 UNITS
     Route: 048
  11. NITROGLYCERIN [Concomitant]
     Indication: ANGINA PECTORIS
     Dosage: DOSE: 0.4 MG REPEAT EVERY 5 MINUTES; MAX OF 3
     Route: 060
  12. SIMVASTATIN [Concomitant]
     Dosage: DOSE: 40 MG (1/2 OF 80 MG TABLET)
     Route: 048
  13. PAROXETINE HCL [Concomitant]
     Dosage: DOSE: 1/2 OF A 40 MG TAB
     Route: 048
  14. PROCHLORPERAZINE [Concomitant]
     Dosage: DOSE: 10 MG EVERY 6 HOURS
     Route: 048

REACTIONS (6)
  - EUPHORIC MOOD [None]
  - HYPERGLYCAEMIA [None]
  - HYPOKALAEMIA [None]
  - INSOMNIA [None]
  - NEUTROPENIA [None]
  - PNEUMONIA [None]
